FAERS Safety Report 14246789 (Version 1)
Quarter: 2017Q4

REPORT INFORMATION
  Report Type: Spontaneous
  Country: RU (occurrence: RU)
  Receive Date: 20171204
  Receipt Date: 20171204
  Transmission Date: 20180321
  Serious: Yes (Other)
  Sender: FDA-Public Use
  Company Number: RU-ASTELLAS-2017US050230

PATIENT
  Age: 70 Year
  Sex: Male

DRUGS (1)
  1. ENZALUTAMIDE [Suspect]
     Active Substance: ENZALUTAMIDE
     Indication: HORMONE-REFRACTORY PROSTATE CANCER
     Dosage: 160 MG, UNKNOWN FREQ. (SINGLE DOSE)
     Route: 065
     Dates: start: 20171027

REACTIONS (8)
  - Disorientation [Unknown]
  - Blood pressure increased [Unknown]
  - Contusion [Unknown]
  - Epilepsy [Unknown]
  - Cerebral haematoma [Unknown]
  - Brain oedema [Unknown]
  - Speech disorder [Unknown]
  - Seizure [Unknown]

NARRATIVE: CASE EVENT DATE: 201710
